FAERS Safety Report 8356602-3 (Version None)
Quarter: 2012Q2

REPORT INFORMATION
  Report Type: 
  Country: None (occurrence: None)
  Receive Date: 20120514
  Receipt Date: 20120509
  Transmission Date: 20120825
  Serious: Yes (Hospitalization)
  Sender: FDA-Public Use
  Company Number: PHHO2012DE003673

PATIENT
  Age: 55 Year
  Sex: Female
  Weight: 115 kg

DRUGS (4)
  1. ENALAPRIL MALEATE [Concomitant]
     Indication: HYPERTENSION
     Dosage: 1-0-1/2
     Route: 048
     Dates: start: 20060101
  2. TASIGNA [Suspect]
     Indication: CHRONIC MYELOID LEUKAEMIA
     Dosage: 300 MG, BID
     Route: 048
     Dates: start: 20110304
  3. BISOPROLOL FUMARATE [Concomitant]
     Indication: HYPERTENSION
     Dosage: 5 MG, QD
     Route: 048
     Dates: start: 20060101
  4. AMLODIPINE [Concomitant]
     Indication: HYPERTENSION
     Dosage: 10 MG, QD
     Route: 048
     Dates: start: 20060101

REACTIONS (1)
  - CORONARY ARTERY DISEASE [None]
